FAERS Safety Report 7069906-1 (Version None)
Quarter: 2010Q4

REPORT INFORMATION
  Report Type: 
  Country: None (occurrence: None)
  Receive Date: 20101028
  Receipt Date: 20100818
  Transmission Date: 20110411
  Serious: No
  Sender: FDA-Public Use
  Company Number: US-WYE-H16158110

PATIENT
  Age: 49 Year
  Sex: Female
  Weight: 74.91 kg

DRUGS (1)
  1. ADVIL [Suspect]
     Indication: BACK PAIN
     Dosage: 4 CAPSULES EVERY 2-4 HOURS
     Route: 048
     Dates: start: 20100615, end: 20100622

REACTIONS (2)
  - DRUG INEFFECTIVE [None]
  - OVERDOSE [None]
